FAERS Safety Report 6105547-8 (Version None)
Quarter: 2009Q1

REPORT INFORMATION
  Report Type: 
  Country: None (occurrence: None)
  Receive Date: 20090306
  Receipt Date: 20090304
  Transmission Date: 20090719
  Serious: Yes (Other)
  Sender: FDA-Public Use
  Company Number: B0563429A

PATIENT
  Age: 17 Year
  Sex: Female
  Weight: 60 kg

DRUGS (4)
  1. VIROLEX [Suspect]
     Dosage: 750MG PER DAY
     Route: 042
     Dates: start: 20081022
  2. METHYLPHENOBARBITONE [Concomitant]
     Route: 048
  3. FUROSEMID [Concomitant]
     Route: 042
  4. MANITOL [Concomitant]
     Route: 042

REACTIONS (2)
  - RENAL FAILURE ACUTE [None]
  - RENAL TUBULAR NECROSIS [None]
